FAERS Safety Report 12856207 (Version 1)
Quarter: 2016Q4

REPORT INFORMATION
  Report Type: Spontaneous
  Country: IT (occurrence: IT)
  Receive Date: 20161018
  Receipt Date: 20161018
  Transmission Date: 20170207
  Serious: Yes (Other)
  Sender: FDA-Public Use
  Company Number: IT-ACCORD-044111

PATIENT
  Age: 50 Year
  Sex: Female

DRUGS (8)
  1. ZARELIS [Concomitant]
     Active Substance: VENLAFAXINE HYDROCHLORIDE
     Dosage: STRENGTH 225 MG
     Route: 048
  2. PANTOPRAZOLE [Concomitant]
     Active Substance: PANTOPRAZOLE SODIUM
     Route: 048
  3. QUETIAPINE. [Suspect]
     Active Substance: QUETIAPINE
     Indication: BIPOLAR DISORDER
     Route: 048
     Dates: start: 20160807, end: 20160815
  4. ANAFRANIL [Concomitant]
     Active Substance: CLOMIPRAMINE HYDROCHLORIDE
     Dosage: STRENGTH 25 MG. ALSO RECEIVED STRENGTH 10 MG AT DOSE 1 DOSAGE FORM.
     Route: 048
  5. ABILIFY [Concomitant]
     Active Substance: ARIPIPRAZOLE
     Dosage: STRENGTH 1 MG/ML
     Route: 048
  6. LAROXYL [Concomitant]
     Active Substance: AMITRIPTYLINE
     Dosage: STRENGTH 10 MG
     Route: 048
  7. EN [Concomitant]
     Active Substance: DELORAZEPAM
     Dosage: STRENGTH 1 MG/ML
     Route: 048
  8. DEPAKIN CHRONO [Concomitant]
     Active Substance: VALPROIC ACID
     Dosage: STRENGTH: 500 MG
     Route: 048

REACTIONS (2)
  - Abdominal pain [Recovering/Resolving]
  - Drug ineffective [Unknown]

NARRATIVE: CASE EVENT DATE: 20160816
